FAERS Safety Report 25922245 (Version 2)
Quarter: 2025Q4

REPORT INFORMATION
  Report Type: Report from Study
  Country: US (occurrence: US)
  Receive Date: 20251015
  Receipt Date: 20251218
  Transmission Date: 20260118
  Serious: Yes (Other)
  Sender: ABBVIE
  Company Number: US-ABBVIE-6451686

PATIENT
  Age: 83 Year
  Sex: Female

DRUGS (1)
  1. SKYRIZI [Suspect]
     Active Substance: RISANKIZUMAB-RZAA
     Indication: Psoriasis
     Route: 058
     Dates: start: 20250513

REACTIONS (15)
  - Road traffic accident [Recovering/Resolving]
  - Weight decreased [Unknown]
  - Wound [Recovering/Resolving]
  - Peripheral swelling [Unknown]
  - Gait inability [Unknown]
  - Stress [Unknown]
  - Joint injury [Unknown]
  - Blood pressure decreased [Unknown]
  - Psoriasis [Unknown]
  - Nasopharyngitis [Unknown]
  - Pain [Not Recovered/Not Resolved]
  - Diarrhoea [Unknown]
  - Investigation abnormal [Unknown]
  - Skin exfoliation [Recovering/Resolving]
  - Psoriatic arthropathy [Unknown]

NARRATIVE: CASE EVENT DATE: 20250101
